FAERS Safety Report 5634223-0 (Version None)
Quarter: 2008Q1

REPORT INFORMATION
  Report Type: 
  Country: None (occurrence: None)
  Receive Date: 20080220
  Receipt Date: 20080220
  Transmission Date: 20080703
  Serious: Yes (Hospitalization)
  Sender: FDA-Public Use
  Company Number: None

PATIENT
  Age: 83 Year
  Sex: Male

DRUGS (1)
  1. TERAZOSIN HCL [Suspect]
     Dosage: 6MG HS PO
     Route: 048
     Dates: start: 20070330, end: 20070727

REACTIONS (1)
  - ORTHOSTATIC HYPOTENSION [None]
